FAERS Safety Report 8205961-0 (Version None)
Quarter: 2012Q1

REPORT INFORMATION
  Report Type: 
  Country: None (occurrence: None)
  Receive Date: 20120313
  Receipt Date: 20120306
  Transmission Date: 20120608
  Serious: Yes (Death, Other)
  Sender: FDA-Public Use
  Company Number: US-CELGENEUS-163-20785-12030592

PATIENT

DRUGS (10)
  1. DEXAMETHASONE [Concomitant]
     Indication: MULTIPLE MYELOMA
     Dosage: 40 MILLIGRAM
     Route: 065
     Dates: start: 20091101, end: 20110101
  2. ASPIRIN [Concomitant]
     Indication: PROPHYLAXIS
     Dosage: 81 OR 325 MG
     Route: 065
  3. BISPHOSPHONATES [Concomitant]
     Route: 041
  4. NEUPOGEN [Concomitant]
     Route: 065
  5. BLOOD PRODUCT SUPPORT [Concomitant]
     Route: 065
  6. THALOMID [Suspect]
     Indication: MULTIPLE MYELOMA
     Dosage: 200 MILLIGRAM
     Route: 048
     Dates: start: 20091101, end: 20110101
  7. REVLIMID [Suspect]
     Dosage: 50 MILLIGRAM
     Route: 048
     Dates: end: 20110101
  8. REVLIMID [Suspect]
     Indication: MULTIPLE MYELOMA
     Dosage: 25 MILLIGRAM
     Route: 048
     Dates: start: 20091101
  9. WARFARIN SODIUM [Concomitant]
     Indication: PROPHYLAXIS
     Route: 065
  10. HEPARIN [Concomitant]
     Indication: PROPHYLAXIS
     Route: 065

REACTIONS (15)
  - THROMBOCYTOPENIA [None]
  - RASH [None]
  - NEUROPATHY PERIPHERAL [None]
  - ASTHENIA [None]
  - ANAEMIA [None]
  - CONSTIPATION [None]
  - OEDEMA PERIPHERAL [None]
  - PNEUMONIA ASPIRATION [None]
  - INFECTION [None]
  - MUSCULAR WEAKNESS [None]
  - DISEASE PROGRESSION [None]
  - NEUTROPENIA [None]
  - HYPERGLYCAEMIA [None]
  - HYPERCALCAEMIA [None]
  - FATIGUE [None]
